FAERS Safety Report 13018337 (Version 1)
Quarter: 2016Q4

REPORT INFORMATION
  Report Type: Spontaneous
  Country: US (occurrence: IL)
  Receive Date: 20161212
  Receipt Date: 20161212
  Transmission Date: 20170207
  Serious: No
  Sender: FDA-Public Use
  Company Number: IL-MISSION PHARMACAL COMPANY-1060692

PATIENT
  Age: 17 Year
  Sex: Male

DRUGS (1)
  1. THIOLA [Suspect]
     Active Substance: TIOPRONIN
     Indication: CYSTINURIA
     Route: 065
     Dates: start: 20140828

REACTIONS (6)
  - Drug ineffective [Unknown]
  - Pain [Unknown]
  - Blood urine present [Unknown]
  - Dizziness [Unknown]
  - Fatigue [Unknown]
  - Bladder discomfort [Unknown]
